FAERS Safety Report 8581392 (Version 3)
Quarter: 2012Q4

REPORT INFORMATION
  Report Type: 
  Country: US (occurrence: US)
  Receive Date: 20120525
  Receipt Date: 20121119
  Transmission Date: 20130627
  Serious: Yes (Other)
  Sender: FDA-Public Use
  Company Number: CHPA2012US010978

PATIENT
  Age: 76 Year
  Sex: Female

DRUGS (4)
  1. EXCEDRIN EXTRA STRENGTH [Suspect]
     Indication: HEADACHE
     Dosage: 1 DF, EVERY 3 WEEKS
     Route: 048
  2. EXCEDRIN EXTRA STRENGTH [Suspect]
     Dosage: 1 DF, PRN
     Route: 048
     Dates: start: 1977, end: 201112
  3. EXCEDRIN EXTRA STRENGTH [Suspect]
     Dosage: 1 DF, ONCE/SINGLE
     Route: 048
     Dates: start: 20120626, end: 20120626
  4. FIBER [Concomitant]
     Dosage: Unk, Unk

REACTIONS (13)
  - Neoplasm malignant [Recovered/Resolved]
  - Diverticulum [Not Recovered/Not Resolved]
  - Nephrolithiasis [Recovered/Resolved]
  - Urinary tract infection [Recovered/Resolved]
  - Spinal compression fracture [Recovered/Resolved]
  - Arthritis [Recovered/Resolved]
  - Arthropathy [Not Recovered/Not Resolved]
  - Arthralgia [Recovered/Resolved]
  - Fall [Recovered/Resolved]
  - Abdominal pain [Not Recovered/Not Resolved]
  - Constipation [Recovered/Resolved]
  - Underdose [Unknown]
  - Expired drug administered [Unknown]
